FAERS Safety Report 9193853 (Version 1)
Quarter: 2013Q1

REPORT INFORMATION
  Report Type: Spontaneous
  Country: IN (occurrence: IN)
  Receive Date: 20130327
  Receipt Date: 20130327
  Transmission Date: 20140127
  Serious: Yes (Other)
  Sender: FDA-Public Use
  Company Number: IN-PFIZER INC-2013038282

PATIENT
  Age: 18 Year
  Sex: Male

DRUGS (4)
  1. OLANZAPINE [Suspect]
     Indication: MANIA
     Dosage: 10 MG, 1X/DAY
  2. OLANZAPINE [Suspect]
     Dosage: 20 MG, 1X/DAY
  3. SERTRALINE HCL [Suspect]
     Indication: MANIA
     Dosage: 100 MG, 1X/DAY
  4. ARIPIPRAZOLE [Concomitant]
     Indication: MANIA
     Dosage: 15 MG, 2X/DAY

REACTIONS (3)
  - Neuroleptic malignant syndrome [Recovering/Resolving]
  - Tuberculosis [Unknown]
  - Off label use [Unknown]
